FAERS Safety Report 25205622 (Version 1)
Quarter: 2025Q2

REPORT INFORMATION
  Report Type: Spontaneous
  Country: US (occurrence: US)
  Receive Date: 20250417
  Receipt Date: 20250417
  Transmission Date: 20250716
  Serious: No
  Sender: BAUSCH AND LOMB
  Company Number: US-BAUSCHBL-2025BNL006031

PATIENT
  Sex: Female

DRUGS (2)
  1. LOTEMAX [Suspect]
     Active Substance: LOTEPREDNOL ETABONATE
     Indication: Product used for unknown indication
     Route: 047
  2. LOTEPREDNOL ETABONATE [Suspect]
     Active Substance: LOTEPREDNOL ETABONATE
     Indication: Product used for unknown indication
     Route: 047

REACTIONS (3)
  - Eye irritation [Unknown]
  - Foreign body sensation in eyes [Unknown]
  - Asthenopia [Unknown]
